FAERS Safety Report 8956659 (Version 2)
Quarter: 2013Q1

REPORT INFORMATION
  Report Type: Spontaneous
  Country: US (occurrence: US)
  Receive Date: 20121210
  Receipt Date: 20130109
  Transmission Date: 20140127
  Serious: Yes (Other)
  Sender: FDA-Public Use
  Company Number: US-SHIRE-ALL1-2012-06025

PATIENT
  Sex: Female
  Weight: 77.3 kg

DRUGS (1)
  1. VPRIV [Suspect]
     Indication: GAUCHER^S DISEASE
     Dosage: 60 IU/KG, OTHER (EVERY FOUR WEEKS)
     Route: 041
     Dates: start: 201204

REACTIONS (1)
  - Retinal haemorrhage [Unknown]
